FAERS Safety Report 7587330-X (Version None)
Quarter: 2011Q3

REPORT INFORMATION
  Report Type: 
  Country: None (occurrence: None)
  Receive Date: 20110701
  Receipt Date: 20110624
  Transmission Date: 20111222
  Serious: Yes (Hospitalization, Other)
  Sender: FDA-Public Use
  Company Number: US-RB-027119-11

PATIENT
  Age: 57 Year
  Sex: Female

DRUGS (9)
  1. TRAZODONE HCL [Concomitant]
     Indication: INSOMNIA
     Route: 065
  2. FAMCICLOVIR [Concomitant]
     Indication: HERPES VIRUS INFECTION
     Route: 065
  3. LEVOTHYROXINE SODIUM [Concomitant]
     Indication: HYPOTHYROIDISM
     Route: 065
  4. ATENOLOL [Concomitant]
     Indication: TACHYCARDIA
     Route: 065
  5. SOMA [Concomitant]
     Indication: SLEEP DISORDER
     Dosage: 350 MG/6 DAILY
     Route: 065
  6. GABAPENTIN [Concomitant]
     Indication: NEURALGIA
     Dosage: 300 MG(6 TABS DAILY)
     Route: 065
  7. SUBOXONE [Suspect]
     Indication: DRUG DEPENDENCE
     Dosage: 4-12 MG/DAY
     Route: 060
     Dates: start: 20110501, end: 20110601
  8. NEXIUM [Concomitant]
     Indication: GASTROOESOPHAGEAL REFLUX DISEASE
     Route: 065
  9. SOMA [Concomitant]
     Indication: MUSCLE TIGHTNESS
     Dosage: 350 MG/6 DAILY
     Route: 065

REACTIONS (14)
  - HYPOAESTHESIA [None]
  - MUSCLE SPASMS [None]
  - SLOW RESPONSE TO STIMULI [None]
  - DRUG WITHDRAWAL SYNDROME [None]
  - CHEST PAIN [None]
  - HEAD INJURY [None]
  - GAIT DISTURBANCE [None]
  - ABDOMINAL RIGIDITY [None]
  - SPEECH DISORDER [None]
  - CONVULSION [None]
  - LOSS OF CONSCIOUSNESS [None]
  - DYSPNOEA [None]
  - BALANCE DISORDER [None]
  - FALL [None]
